FAERS Safety Report 21612514 (Version 1)
Quarter: 2022Q4

REPORT INFORMATION
  Report Type: Report from Study
  Country: US (occurrence: US)
  Receive Date: 20221118
  Receipt Date: 20221118
  Transmission Date: 20230112
  Serious: No
  Sender: FDA-Public Use
  Company Number: US-ABBVIE-4171469

PATIENT
  Sex: Female

DRUGS (1)
  1. SKYRIZI [Suspect]
     Active Substance: RISANKIZUMAB-RZAA
     Indication: Psoriasis
     Dosage: 150MG SQ AT WEEK 0, WEEK 4, AND EVERY 12 WEEKS THEREAFTER
     Route: 058
     Dates: start: 202208

REACTIONS (3)
  - Psoriasis [Unknown]
  - Pain [Unknown]
  - Skin irritation [Unknown]

NARRATIVE: CASE EVENT DATE: 20220101
